FAERS Safety Report 9163435 (Version 1)
Quarter: 2013Q1

REPORT INFORMATION
  Report Type: Spontaneous
  Country: CA (occurrence: CA)
  Receive Date: 20130314
  Receipt Date: 20130314
  Transmission Date: 20140127
  Serious: Yes (Other)
  Sender: FDA-Public Use
  Company Number: CA-BAYER-2013-029982

PATIENT
  Sex: Female

DRUGS (1)
  1. CANESTEN [Suspect]

REACTIONS (3)
  - Skin haemorrhage [None]
  - Pain [None]
  - Pain [None]
